FAERS Safety Report 7525308-2 (Version None)
Quarter: 2011Q2

REPORT INFORMATION
  Report Type: 
  Country: None (occurrence: None)
  Receive Date: 20110526
  Receipt Date: 20110516
  Transmission Date: 20111010
  Serious: Yes (Hospitalization)
  Sender: FDA-Public Use
  Company Number: AU-1186149

PATIENT
  Sex: Female

DRUGS (4)
  1. METOPROLOL [Concomitant]
  2. DAPSONE [Concomitant]
  3. LERCANIDIPINE [Concomitant]
  4. AZOPT [Suspect]
     Dosage: OPHTHALMIC
     Route: 047

REACTIONS (4)
  - DIZZINESS [None]
  - ATRIOVENTRICULAR BLOCK FIRST DEGREE [None]
  - FALL [None]
  - BLOOD PRESSURE FLUCTUATION [None]
